FAERS Safety Report 5264154-X (Version None)
Quarter: 2007Q1

REPORT INFORMATION
  Report Type: 
  Country: None (occurrence: None)
  Receive Date: 20070313
  Receipt Date: 20070305
  Transmission Date: 20070707
  Serious: Yes (Hospitalization)
  Sender: FDA-Public Use
  Company Number: TR-ROXANE LABORATORIES, INC-2007-BP-02990RO

PATIENT
  Age: 87 Year
  Sex: Male

DRUGS (1)
  1. CLARITHROMYCIN [Suspect]
     Indication: UPPER RESPIRATORY TRACT INFECTION
     Dosage: 500 MG X 3 DAYS
     Route: 048

REACTIONS (8)
  - AGITATION [None]
  - DELIRIUM [None]
  - DELUSION [None]
  - DELUSION OF GRANDEUR [None]
  - DELUSIONS, MIXED [None]
  - DISORIENTATION [None]
  - DISTURBANCE IN ATTENTION [None]
  - HALLUCINATION, VISUAL [None]
